FAERS Safety Report 8837393 (Version 1)
Quarter: 2012Q4

REPORT INFORMATION
  Report Type: 
  Country: NL (occurrence: NL)
  Receive Date: 20121012
  Receipt Date: 20121012
  Transmission Date: 20130627
  Serious: Yes (Other)
  Sender: FDA-Public Use
  Company Number: PHHY2012NL090224

PATIENT
  Sex: Male

DRUGS (4)
  1. ZOMETA [Suspect]
     Indication: LUNG CANCER METASTATIC
     Dosage: 4 mg, per 100ml solution once per 21 days
  2. ZOMETA [Suspect]
     Dosage: 4 mg, per 100ml solution once per 21 days
     Dates: start: 20110524
  3. ZOMETA [Suspect]
     Dosage: 4 mg, per 100ml solution once per 21 days
     Dates: start: 20120905
  4. ZOMETA [Suspect]
     Dosage: 4 mg, per 100ml solution once per 21 days
     Dates: start: 20120926

REACTIONS (1)
  - Terminal state [Unknown]
